FAERS Safety Report 8721363 (Version 2)
Quarter: 2013Q2

REPORT INFORMATION
  Report Type: Spontaneous
  Country: IT (occurrence: None)
  Receive Date: 20120726
  Receipt Date: 20130404
  Transmission Date: 20140414
  Serious: No
  Sender: FDA-Public Use
  Company Number: 1207ITA001655

PATIENT
  Age: 72 Year
  Sex: Female

DRUGS (8)
  1. CEDAX [Suspect]
     Indication: BRONCHITIS
     Route: 048
     Dates: start: 20120412, end: 20120413
  2. LANSOPRAZOLE [Concomitant]
  3. EZETIMIBE AND SIMVASTATIN [Concomitant]
  4. LASIX [Concomitant]
  5. LOSARTAN POTASSIUM [Concomitant]
  6. METFONORM (METFORMIN HYDROCHLORIDE) [Concomitant]
  7. GLUCOBAY [Concomitant]
  8. LYRICA [Concomitant]

REACTIONS (1)
  - PRURITUS GENERALISED [None]
